FAERS Safety Report 6474849-8 (Version None)
Quarter: 2009Q4

REPORT INFORMATION
  Report Type: 
  Country: None (occurrence: None)
  Receive Date: 20091204
  Receipt Date: 20090313
  Transmission Date: 20100525
  Serious: Yes (Hospitalization)
  Sender: FDA-Public Use
  Company Number: SK-ELI_LILLY_AND_COMPANY-SK200902006398

PATIENT
  Sex: Female

DRUGS (6)
  1. ZYPREXA [Suspect]
     Indication: SCHIZOPHRENIA
     Dosage: 5 MG, DAILY (1/D)
     Route: 048
     Dates: start: 20050225, end: 20061101
  2. ZYPREXA [Suspect]
     Dosage: 5 MG, DAILY (1/D)
     Route: 048
     Dates: start: 20070507, end: 20090226
  3. SERTRALINE HCL [Concomitant]
     Indication: SCHIZOPHRENIA
     Route: 048
  4. BISOPROLOL [Concomitant]
     Indication: HYPERTENSION
     Route: 048
  5. HELICID [Concomitant]
  6. PANCREATIN [Concomitant]
     Route: 048

REACTIONS (2)
  - ATONIC URINARY BLADDER [None]
  - PYELONEPHRITIS CHRONIC [None]
